FAERS Safety Report 6879747-3 (Version None)
Quarter: 2010Q3

REPORT INFORMATION
  Report Type: 
  Country: None (occurrence: None)
  Receive Date: 20100728
  Receipt Date: 20100720
  Transmission Date: 20110219
  Serious: Yes (Other)
  Sender: FDA-Public Use
  Company Number: JP-JNJFOC-20100705634

PATIENT
  Sex: Female
  Weight: 38 kg

DRUGS (16)
  1. REMICADE [Suspect]
     Indication: CROHN'S DISEASE
     Route: 042
  2. REMICADE [Suspect]
     Route: 042
  3. VEEN-D [Concomitant]
  4. PENTASA [Concomitant]
     Route: 048
  5. HEMONASE [Concomitant]
     Dosage: 3 TABS PER DAY
     Route: 048
  6. LORAZEPAM [Concomitant]
     Route: 048
  7. MUCODYNE [Concomitant]
     Route: 048
  8. BISOLVON [Concomitant]
     Route: 048
  9. LAC-B [Concomitant]
     Route: 048
  10. GASTER D [Concomitant]
     Route: 048
  11. PREDONINE [Concomitant]
     Route: 048
  12. CINAL [Concomitant]
     Dosage: 1 TAB DAILY
     Route: 048
  13. DEPAS [Concomitant]
     Route: 048
  14. TETRAMIDE [Concomitant]
     Route: 048
  15. LENDORMIN D [Concomitant]
     Route: 048
  16. DOGMATYL [Concomitant]

REACTIONS (4)
  - DYSPNOEA [None]
  - HYPOXIA [None]
  - INFUSION RELATED REACTION [None]
  - PYREXIA [None]
